FAERS Safety Report 9057122 (Version 2)
Quarter: 2013Q1

REPORT INFORMATION
  Report Type: Spontaneous
  Country: BR (occurrence: BR)
  Receive Date: 20130131
  Receipt Date: 20130325
  Transmission Date: 20140127
  Serious: Yes (Hospitalization, Other)
  Sender: FDA-Public Use
  Company Number: BR-PFIZER INC-2013034033

PATIENT
  Age: 65 Year
  Sex: Female
  Weight: 82 kg

DRUGS (7)
  1. ATENOLOL [Suspect]
     Indication: HYPERTENSION
     Dosage: 25 MG, UNK
     Route: 048
     Dates: end: 201212
  2. AMLODIPINE BESILATE [Suspect]
     Indication: HYPERTENSION
     Dosage: UNK
     Route: 048
     Dates: end: 201212
  3. BRILINTA [Suspect]
     Indication: DRESSLER^S SYNDROME
     Dosage: 90 MG, 2X/DAY
     Route: 048
     Dates: start: 201212
  4. INSULIN [Concomitant]
     Dosage: UNK
     Route: 048
  5. LOSARTAN [Concomitant]
     Indication: HYPERTENSION
     Dosage: UNK
     Route: 048
     Dates: start: 201301
  6. ATORVASTATIN [Concomitant]
     Indication: BLOOD CHOLESTEROL INCREASED
     Dosage: UNK
     Route: 048
     Dates: start: 201301
  7. ASA [Concomitant]
     Dosage: UNK
     Route: 048
     Dates: start: 2013

REACTIONS (9)
  - Myocardial infarction [Recovering/Resolving]
  - Hypertension [Not Recovered/Not Resolved]
  - Drug ineffective [Unknown]
  - Hyperhidrosis [Not Recovered/Not Resolved]
  - Malaise [Not Recovered/Not Resolved]
  - Hypoglycaemia [Not Recovered/Not Resolved]
  - Anxiety [Not Recovered/Not Resolved]
  - Skin discolouration [Unknown]
  - Paraesthesia [Unknown]
